FAERS Safety Report 23962350 (Version 4)
Quarter: 2024Q3

REPORT INFORMATION
  Report Type: Spontaneous
  Country: US (occurrence: US)
  Receive Date: 20240611
  Receipt Date: 20240724
  Transmission Date: 20241016
  Serious: No
  Sender: AMGEN
  Company Number: US-AMGEN-USASP2024112793

PATIENT
  Sex: Female

DRUGS (15)
  1. PROCYSBI [Suspect]
     Active Substance: CYSTEAMINE BITARTRATE
     Indication: Amino acid metabolism disorder
     Dosage: 1125 MILLIGRAM, Q12H (15 CAPSULES)
     Route: 048
  2. PROCYSBI [Suspect]
     Active Substance: CYSTEAMINE BITARTRATE
     Indication: Cystinosis
  3. EPOGEN [Suspect]
     Active Substance: ERYTHROPOIETIN
     Indication: Product used for unknown indication
     Dosage: UNK, 10000/ML VIAL
     Route: 065
  4. PROMETHAZINE [Concomitant]
     Active Substance: PROMETHAZINE HYDROCHLORIDE
     Dosage: 6.25MG/5ML
  5. EPANED [Concomitant]
     Active Substance: ENALAPRIL MALEATE
     Dosage: 1 MG/ML SOLUTION
  6. LEVOCARNITINE [Concomitant]
     Active Substance: LEVOCARNITINE
     Dosage: UNK, 100 MG/ML
  7. ONDANSETRON [Concomitant]
     Active Substance: ONDANSETRON
     Dosage: UNK, 8 MG
  8. CALCITRIOL [Concomitant]
     Active Substance: CALCITRIOL
     Dosage: UNK, 1 MCG/ML
  9. FERROUS SULFATE [Concomitant]
     Active Substance: FERROUS SULFATE
     Dosage: UNK, 50ML
  10. CYSTADROPS [Concomitant]
     Active Substance: CYSTEAMINE HYDROCHLORIDE
     Dosage: UNK, 0.37 PERCENT
  11. GENOTROPIN [Concomitant]
     Active Substance: SOMATROPIN
     Dosage: UNK, 12 MG/ML
  12. CITRIC ACID\POTASSIUM CITRATE [Concomitant]
     Active Substance: CITRIC ACID MONOHYDRATE\POTASSIUM CITRATE
  13. PREVACID [Concomitant]
     Active Substance: LANSOPRAZOLE
     Dosage: UNK, 15 MG
  14. FAMOTIDINE [Concomitant]
     Active Substance: FAMOTIDINE
     Dosage: UNK
  15. RECON [Concomitant]

REACTIONS (3)
  - Appetite disorder [Unknown]
  - Malaise [Unknown]
  - Hypophagia [Unknown]
